FAERS Safety Report 19243178 (Version 1)
Quarter: 2021Q2

REPORT INFORMATION
  Report Type: Spontaneous
  Country: US (occurrence: US)
  Receive Date: 20210511
  Receipt Date: 20210511
  Transmission Date: 20210717
  Serious: No
  Sender: FDA-Public Use
  Company Number: US-PFIZER INC-2021208841

PATIENT
  Age: 66 Year
  Sex: Female
  Weight: 74.38 kg

DRUGS (3)
  1. ADVIL [Concomitant]
     Active Substance: IBUPROFEN
     Dosage: UNK
  2. IBRANCE [Suspect]
     Active Substance: PALBOCICLIB
     Dosage: UNK
     Dates: start: 20210113
  3. IBRANCE [Suspect]
     Active Substance: PALBOCICLIB
     Indication: BREAST CANCER FEMALE
     Dosage: 125 MG, CYCLIC (TAKE 1 TABLET BY MOUTH DAILY FOR 21 DAYS THEN 7 DAYS OFF THEN REPEAT)
     Route: 048
     Dates: start: 202102

REACTIONS (3)
  - Epistaxis [Not Recovered/Not Resolved]
  - Nausea [Recovering/Resolving]
  - Plantar fasciitis [Not Recovered/Not Resolved]

NARRATIVE: CASE EVENT DATE: 202101
